FAERS Safety Report 5283508-9 (Version None)
Quarter: 2007Q1

REPORT INFORMATION
  Report Type: 
  Country: None (occurrence: None)
  Receive Date: 20061226
  Receipt Date: 20060821
  Transmission Date: 20070707
  Serious: No
  Sender: FDA-Public Use
  Company Number: PHEH2006US08676

PATIENT
  Sex: Female

DRUGS (1)
  1. ENABLEX [Suspect]
     Indication: URINARY INCONTINENCE
     Dates: start: 20060525, end: 20060701

REACTIONS (1)
  - DRUG INEFFECTIVE [None]
